FAERS Safety Report 21374991 (Version 1)
Quarter: 2022Q3

REPORT INFORMATION
  Report Type: Spontaneous
  Country: US (occurrence: US)
  Receive Date: 20220926
  Receipt Date: 20220926
  Transmission Date: 20221026
  Serious: Yes (Other)
  Sender: FDA-Public Use
  Company Number: US-drreddys-LIT/USA/22/0154936

PATIENT
  Age: 61 Year
  Sex: Female

DRUGS (5)
  1. SIROLIMUS [Suspect]
     Active Substance: SIROLIMUS
     Indication: Endometrial sarcoma metastatic
  2. SIROLIMUS [Suspect]
     Active Substance: SIROLIMUS
     Indication: Acquired gene mutation
     Dosage: DOSE WAS DECREASED TO 1 MG/DAY
  3. SIROLIMUS [Suspect]
     Active Substance: SIROLIMUS
     Dosage: GRADUALLY INCREASED TO 4 MG/DAY
  4. EXEMESTANE [Concomitant]
     Active Substance: EXEMESTANE
     Indication: Metastatic neoplasm
  5. LEUPROLIDE [Concomitant]
     Active Substance: LEUPROLIDE
     Indication: Metastatic neoplasm

REACTIONS (4)
  - Endometrial sarcoma metastatic [Unknown]
  - Acquired gene mutation [Unknown]
  - Disease progression [Unknown]
  - Drug ineffective [Unknown]
